FAERS Safety Report 20481860 (Version 1)
Quarter: 2022Q1

REPORT INFORMATION
  Report Type: Report from Study
  Country: KR (occurrence: KR)
  Receive Date: 20220216
  Receipt Date: 20220216
  Transmission Date: 20220423
  Serious: Yes (Death, Other)
  Sender: FDA-Public Use
  Company Number: KR-PFIZER INC-202200248766

PATIENT

DRUGS (2)
  1. OXALIPLATIN [Suspect]
     Active Substance: OXALIPLATIN
     Indication: Gastrointestinal carcinoma
     Dosage: 130 MG/M2, CYCLIC (ON DAY 1)
     Route: 042
  2. NIVOLUMAB [Suspect]
     Active Substance: NIVOLUMAB
     Indication: Gastrointestinal carcinoma
     Dosage: 360 MG, EVERY 3 WEEKS
     Route: 042

REACTIONS (1)
  - Hepatic failure [Fatal]
